FAERS Safety Report 8860184 (Version 1)
Quarter: 2012Q4

REPORT INFORMATION
  Report Type: 
  Country: US (occurrence: US)
  Receive Date: 20121025
  Receipt Date: 20121025
  Transmission Date: 20130627
  Serious: Yes (Other)
  Sender: FDA-Public Use
  Company Number: US-PFIZER INC-2012265181

PATIENT

DRUGS (2)
  1. NEURONTIN [Suspect]
     Dosage: 600 mg, 3x/day
  2. NEURONTIN [Suspect]
     Dosage: 300 mg, UNK

REACTIONS (5)
  - Pancreatic disorder [Unknown]
  - Enzyme abnormality [Unknown]
  - Abdominal pain upper [Unknown]
  - Swelling [Unknown]
  - Viral infection [Unknown]
